FAERS Safety Report 5765213-5 (Version None)
Quarter: 2008Q2

REPORT INFORMATION
  Report Type: 
  Country: None (occurrence: None)
  Receive Date: 20080611
  Receipt Date: 20080602
  Transmission Date: 20081010
  Serious: Yes (Other)
  Sender: FDA-Public Use
  Company Number: US-BAYER-200812016BCC

PATIENT
  Age: 82 Year
  Sex: Male
  Weight: 82 kg

DRUGS (6)
  1. ASPIRIN [Suspect]
     Indication: DRUG USE FOR UNKNOWN INDICATION
     Route: 048
  2. PLAVIX [Suspect]
     Indication: DRUG USE FOR UNKNOWN INDICATION
  3. NEXIUM [Concomitant]
  4. SIMBATALIN [Concomitant]
  5. ISOSORBIDE DINITRATE [Concomitant]
  6. ANTIDIABETIC MEDICATIONS (NOS) [Concomitant]

REACTIONS (3)
  - LEUKAEMIA [None]
  - PLATELET COUNT DECREASED [None]
  - WEIGHT DECREASED [None]
